FAERS Safety Report 8356011 (Version 2)
Quarter: 2012Q4

REPORT INFORMATION
  Report Type: 
  Country: US (occurrence: US)
  Receive Date: 20120126
  Receipt Date: 20121224
  Transmission Date: 20130627
  Serious: Yes (Death, Other)
  Sender: FDA-Public Use
  Company Number: US-ELI_LILLY_AND_COMPANY-US201201006860

PATIENT
  Sex: Male

DRUGS (3)
  1. BYETTA [Suspect]
     Dosage: 5 ug, bid
     Route: 058
  2. LEVEMIR [Concomitant]
     Dosage: 100 u, each evening
     Route: 058
  3. NOVOLOG [Concomitant]
     Dosage: UNK, tid

REACTIONS (2)
  - Renal failure [Fatal]
  - Off label use [Unknown]
